FAERS Safety Report 10101804 (Version 1)
Quarter: 2014Q2

REPORT INFORMATION
  Report Type: Spontaneous
  Country: US (occurrence: None)
  Receive Date: 20140423
  Receipt Date: 20140423
  Transmission Date: 20141212
  Serious: Yes (Other)
  Sender: FDA-Public Use
  Company Number: None

PATIENT
  Age: 56 Year
  Sex: Male

DRUGS (1)
  1. ATORVASTATIN [Suspect]

REACTIONS (4)
  - Atrial fibrillation [None]
  - Rhabdomyolysis [None]
  - Renal failure acute [None]
  - Nephropathy toxic [None]
